FAERS Safety Report 9097681 (Version 1)
Quarter: 2013Q1

REPORT INFORMATION
  Report Type: Spontaneous
  Country: LB (occurrence: LB)
  Receive Date: 20130212
  Receipt Date: 20130212
  Transmission Date: 20140127
  Serious: No
  Sender: FDA-Public Use
  Company Number: PHHY2013LB013379

PATIENT
  Sex: Male

DRUGS (6)
  1. TASIGNA [Suspect]
     Indication: CHRONIC MYELOID LEUKAEMIA
     Dosage: 400 MG, QD
     Route: 048
     Dates: start: 20120312
  2. DILZEM [Concomitant]
     Dosage: 1 DF, QD
     Route: 048
  3. ATACAND [Concomitant]
     Dosage: 1 DF, QD
     Route: 048
  4. ZYLORIC [Concomitant]
     Dosage: 1 DF, QD
     Route: 048
  5. GLIBOMET [Concomitant]
     Dosage: 1 DF, Q12H
     Route: 048
  6. PARIET [Concomitant]
     Dosage: 1 DF, QD
     Route: 048

REACTIONS (1)
  - Haemoptysis [Not Recovered/Not Resolved]
